FAERS Safety Report 13891897 (Version 2)
Quarter: 2017Q4

REPORT INFORMATION
  Report Type: Report from Study
  Country: US (occurrence: US)
  Receive Date: 20170822
  Receipt Date: 20171120
  Transmission Date: 20180320
  Serious: Yes (Hospitalization, Other)
  Sender: FDA-Public Use
  Company Number: US-GILEAD-2017-0289112

PATIENT
  Age: 76 Year
  Sex: Female
  Weight: 54.42 kg

DRUGS (12)
  1. PLAQUENIL                          /00072602/ [Concomitant]
     Active Substance: HYDROXYCHLOROQUINE DIPHOSPHATE
  2. LASIX [Concomitant]
     Active Substance: FUROSEMIDE
  3. AMBRISENTAN [Suspect]
     Active Substance: AMBRISENTAN
     Indication: PULMONARY ARTERIAL HYPERTENSION
     Dosage: 10 MG, QD
     Route: 048
     Dates: start: 20160713
  4. PREDNISONE. [Concomitant]
     Active Substance: PREDNISONE
  5. ATORVASTATIN [Concomitant]
     Active Substance: ATORVASTATIN
  6. LOSARTAN. [Concomitant]
     Active Substance: LOSARTAN
  7. METHIMAZOLE. [Concomitant]
     Active Substance: METHIMAZOLE
  8. NIFEDIPINE. [Concomitant]
     Active Substance: NIFEDIPINE
     Dosage: UNK
  9. ADCIRCA [Concomitant]
     Active Substance: TADALAFIL
     Dosage: UNK
  10. TADALAFIL [Concomitant]
     Active Substance: TADALAFIL
  11. METOPROLOL. [Concomitant]
     Active Substance: METOPROLOL
  12. METHOTREXATE. [Concomitant]
     Active Substance: METHOTREXATE

REACTIONS (4)
  - Cerebral infarction [Not Recovered/Not Resolved]
  - Atrial septal defect [Not Recovered/Not Resolved]
  - Cerebrovascular accident [Unknown]
  - Coronary artery thrombosis [Not Recovered/Not Resolved]

NARRATIVE: CASE EVENT DATE: 20170817
